FAERS Safety Report 13156005 (Version 1)
Quarter: 2017Q1

REPORT INFORMATION
  Report Type: Spontaneous
  Country: US (occurrence: US)
  Receive Date: 20170126
  Receipt Date: 20170126
  Transmission Date: 20170428
  Serious: No
  Sender: FDA-Public Use
  Company Number: US-ROCHE-1231337

PATIENT
  Age: 39 Year
  Sex: Female

DRUGS (2)
  1. VALIUM [Suspect]
     Active Substance: DIAZEPAM
     Indication: INNER EAR DISORDER
  2. VALIUM [Suspect]
     Active Substance: DIAZEPAM
     Indication: DIZZINESS
     Dosage: 2 MG SPLIT IN HALF
     Route: 048

REACTIONS (1)
  - Pregnancy test positive [Unknown]
